FAERS Safety Report 4728039-7 (Version None)
Quarter: 2005Q3

REPORT INFORMATION
  Report Type: 
  Country: None (occurrence: None)
  Receive Date: 20050725
  Receipt Date: 20050411
  Transmission Date: 20060218
  Serious: No
  Sender: FDA-Public Use
  Company Number: USA050495326

PATIENT
  Age: 7 Year
  Sex: Male

DRUGS (3)
  1. STRATTERA [Suspect]
     Dosage: 40 MG DAY
     Dates: start: 20050201
  2. ZOLOFT [Concomitant]
  3. CONCERTA [Concomitant]

REACTIONS (2)
  - PRURITUS [None]
  - WOUND [None]
